FAERS Safety Report 8387834-6 (Version None)
Quarter: 2012Q2

REPORT INFORMATION
  Report Type: 
  Country: None (occurrence: None)
  Receive Date: 20120525
  Receipt Date: 20120307
  Transmission Date: 20120825
  Serious: No
  Sender: FDA-Public Use
  Company Number: US-BRISTOL-MYERS SQUIBB COMPANY-16441347

PATIENT
  Sex: Male

DRUGS (2)
  1. KOMBIGLYZE XR [Suspect]
     Dosage: 1 DF= 5/500 UNIT NOS. LOT MAY END IN 0025
  2. CIALIS [Concomitant]

REACTIONS (2)
  - EYE PAIN [None]
  - MYALGIA [None]
